FAERS Safety Report 8587518-5 (Version None)
Quarter: 2012Q3

REPORT INFORMATION
  Report Type: 
  Country: None (occurrence: None)
  Receive Date: 20120810
  Receipt Date: 20120803
  Transmission Date: 20120928
  Serious: Yes (Hospitalization, Other)
  Sender: FDA-Public Use
  Company Number: FR-PFIZER INC-2012188716

PATIENT
  Age: 51 Year
  Sex: Female

DRUGS (4)
  1. ACETAMINOPHEN [Concomitant]
     Dosage: UNK
     Dates: start: 20111001
  2. OMEPRAZOLE [Concomitant]
     Dosage: UNK
     Dates: start: 20111001
  3. SULFASALAZINE [Suspect]
     Indication: RHEUMATOID ARTHRITIS
     Dosage: 2 G, 1X/DAY
     Route: 048
     Dates: start: 20111011, end: 20111123
  4. KETOPROFEN [Concomitant]
     Dosage: UNK
     Dates: start: 20111001

REACTIONS (4)
  - HYPERGAMMAGLOBULINAEMIA [None]
  - CYTOLYTIC HEPATITIS [None]
  - DRUG RASH WITH EOSINOPHILIA AND SYSTEMIC SYMPTOMS [None]
  - CHOLESTASIS [None]
